FAERS Safety Report 15473121 (Version 1)
Quarter: 2018Q4

REPORT INFORMATION
  Report Type: Spontaneous
  Country: US (occurrence: US)
  Receive Date: 20181008
  Receipt Date: 20181008
  Transmission Date: 20190205
  Serious: Yes (Life-Threatening, Other)
  Sender: FDA-Public Use
  Company Number: US-ROCHE-2194432

PATIENT
  Age: 58 Year
  Sex: Male
  Weight: 92.02 kg

DRUGS (6)
  1. VEMURAFENIB. [Suspect]
     Active Substance: VEMURAFENIB
     Indication: METASTATIC MALIGNANT MELANOMA
     Route: 065
     Dates: start: 20180520, end: 20180531
  2. COBIMETINIB. [Suspect]
     Active Substance: COBIMETINIB
     Indication: METASTATIC MALIGNANT MELANOMA
     Route: 065
     Dates: start: 20180520, end: 20180531
  3. ENCORAFENIB [Suspect]
     Active Substance: ENCORAFENIB
     Route: 065
     Dates: start: 20180813, end: 20180919
  4. ENCORAFENIB [Suspect]
     Active Substance: ENCORAFENIB
     Indication: MALIGNANT MELANOMA
     Route: 048
     Dates: start: 20180804, end: 20180807
  5. BINIMETINIB [Suspect]
     Active Substance: BINIMETINIB
     Route: 048
     Dates: start: 20180813, end: 20180919
  6. BINIMETINIB [Suspect]
     Active Substance: BINIMETINIB
     Indication: MALIGNANT MELANOMA
     Route: 048
     Dates: start: 20180804, end: 20180807

REACTIONS (8)
  - Disease progression [Recovering/Resolving]
  - Chills [Unknown]
  - Pyrexia [Unknown]
  - Hypercalcaemia [Unknown]
  - Hypokalaemia [Unknown]
  - Acute kidney injury [Recovering/Resolving]
  - Diarrhoea [Unknown]
  - Tremor [Unknown]

NARRATIVE: CASE EVENT DATE: 201806
